FAERS Safety Report 8886148 (Version 2)
Quarter: 2012Q4

REPORT INFORMATION
  Report Type: 
  Country: JP (occurrence: JP)
  Receive Date: 20121105
  Receipt Date: 20121120
  Transmission Date: 20130627
  Serious: Yes (Other)
  Sender: FDA-Public Use
  Company Number: JP-SANOFI-AVENTIS-2012SA079980

PATIENT
  Age: 11 Year
  Sex: Male

DRUGS (2)
  1. ALLEGRA [Suspect]
     Indication: NASAL CONGESTION
     Route: 048
     Dates: start: 201006, end: 201205
  2. KIPRES [Concomitant]
     Indication: NASAL CONGESTION

REACTIONS (2)
  - Epilepsy [Recovered/Resolved]
  - Loss of consciousness [Recovered/Resolved]
